FAERS Safety Report 4683132-2 (Version None)
Quarter: 2005Q2

REPORT INFORMATION
  Report Type: 
  Country: None (occurrence: None)
  Receive Date: 20050602
  Receipt Date: 20050331
  Transmission Date: 20051028
  Serious: No
  Sender: FDA-Public Use
  Company Number: USA050394484

PATIENT
  Age: 23 Year
  Sex: Female

DRUGS (2)
  1. CYMBALTA [Suspect]
     Indication: DEPRESSION
     Dosage: 60 MG DAY
     Dates: start: 20050201, end: 20050323
  2. ORAL CONTRACEPTIVE NOS [Concomitant]

REACTIONS (11)
  - ANXIETY [None]
  - DRUG INEFFECTIVE [None]
  - FATIGUE [None]
  - HYPERHIDROSIS [None]
  - HYPOAESTHESIA [None]
  - HYPOKINESIA [None]
  - INSOMNIA [None]
  - MUSCLE SPASMS [None]
  - PARAESTHESIA [None]
  - SOMNOLENCE [None]
  - TREMOR [None]
